FAERS Safety Report 6603065-1 (Version None)
Quarter: 2010Q1

REPORT INFORMATION
  Report Type: 
  Country: None (occurrence: None)
  Receive Date: 20100226
  Receipt Date: 20100219
  Transmission Date: 20100710
  Serious: Yes (Death, Other)
  Sender: FDA-Public Use
  Company Number: PHEH2010US01593

PATIENT
  Sex: Female

DRUGS (13)
  1. ZOMETA [Suspect]
     Indication: MULTIPLE MYELOMA
     Dosage: 4 MG, QMO
     Route: 042
     Dates: start: 20071229, end: 20090723
  2. CYMBALTA [Concomitant]
     Indication: DEPRESSION
     Dosage: 60 MG, QD
     Route: 048
  3. ACYCLOVIR [Concomitant]
     Indication: ANTIVIRAL PROPHYLAXIS
     Dosage: 200 MG, BID
     Route: 048
  4. TIZANIDINE HCL [Concomitant]
     Dosage: 4MG BID + HS
     Route: 048
     Dates: start: 20090518
  5. ALPRAZOLAM [Concomitant]
     Dosage: 0.5 MG, PRN
     Route: 048
  6. FLOMAX [Concomitant]
     Dosage: 0.4 MG, QD
     Route: 048
     Dates: start: 20090518
  7. MELATONIN [Concomitant]
     Dosage: 5 MG HS PRN
     Route: 048
  8. SENNA-S (DOCUSATE SODIUM/SENNA ALEXANDRINA) [Concomitant]
     Dosage: 2-4 TABS QD PRN
     Route: 048
  9. OMEPRAZOLE [Concomitant]
     Dosage: 20 MG, 1-2 QD
  10. LORAZEPAM [Concomitant]
     Dosage: 1MG - 2MG QHS
     Route: 048
  11. ANTIHISTAMINES [Concomitant]
  12. ANTIARRHYTHMICS, CLASS I AND III [Concomitant]
  13. THEOPHYLLINE [Concomitant]

REACTIONS (4)
  - HYPERCALCAEMIA [None]
  - MULTIPLE MYELOMA [None]
  - PANCYTOPENIA [None]
  - PULMONARY CONGESTION [None]
